FAERS Safety Report 8157146-4 (Version None)
Quarter: 2012Q1

REPORT INFORMATION
  Report Type: 
  Country: None (occurrence: None)
  Receive Date: 20120222
  Receipt Date: 20120216
  Transmission Date: 20120608
  Serious: Yes (Disabling)
  Sender: FDA-Public Use
  Company Number: BR-ROCHE-1024155

PATIENT
  Sex: Female
  Weight: 66 kg

DRUGS (6)
  1. AMITRIPTYLINE HCL [Concomitant]
     Dates: start: 20110222
  2. OMEPRAZOLE [Concomitant]
     Dates: start: 20110613
  3. PREDNISONE [Concomitant]
     Dates: start: 20090901
  4. METHOTREXATE [Suspect]
     Indication: RHEUMATOID ARTHRITIS
     Dosage: LAST DOSE PRIOR TO SAE 06 DEC 2011
     Route: 048
     Dates: start: 20101129
  5. FOLIC ACID [Concomitant]
     Dates: start: 20101129
  6. ACTEMRA [Suspect]
     Indication: RHEUMATOID ARTHRITIS
     Dosage: LAST DOSE PRIOR TO SAE 04 OCT 2011
     Route: 042
     Dates: start: 20101129, end: 20111101

REACTIONS (1)
  - CEREBROVASCULAR ACCIDENT [None]
